FAERS Safety Report 13507935 (Version 1)
Quarter: 2017Q2

REPORT INFORMATION
  Report Type: Spontaneous
  Country: US (occurrence: US)
  Receive Date: 20170503
  Receipt Date: 20170503
  Transmission Date: 20170830
  Serious: No
  Sender: FDA-Public Use
  Company Number: US-PFIZER INC-2017188825

PATIENT
  Age: 92 Year
  Sex: Female

DRUGS (2)
  1. LAXATIVE [Suspect]
     Active Substance: UNSPECIFIED INGREDIENT
     Dosage: UNK
  2. IBRANCE [Suspect]
     Active Substance: PALBOCICLIB
     Indication: BREAST CANCER FEMALE
     Dosage: 125 MG, CYCLIC (ONCE DAILY (1 QD), 21 ON 7 OFF)
     Route: 048
     Dates: start: 201703

REACTIONS (3)
  - Dehydration [Unknown]
  - Drug dose omission [Recovered/Resolved]
  - Abdominal pain [Unknown]

NARRATIVE: CASE EVENT DATE: 20170423
